FAERS Safety Report 7602159-1 (Version None)
Quarter: 2011Q3

REPORT INFORMATION
  Report Type: 
  Country: None (occurrence: None)
  Receive Date: 20110711
  Receipt Date: 20110601
  Transmission Date: 20111222
  Serious: No
  Sender: FDA-Public Use
  Company Number: JP-ASTRAZENECA-2011SE27425

PATIENT
  Age: 74 Year
  Sex: Male

DRUGS (2)
  1. OTHER CHEMOTHERAPEUTICS [Suspect]
     Indication: LUNG NEOPLASM MALIGNANT
  2. IRESSA [Suspect]
     Indication: LUNG NEOPLASM MALIGNANT
     Route: 048
     Dates: start: 20110413, end: 20110510

REACTIONS (1)
  - CARDIAC FAILURE [None]
